FAERS Safety Report 23259135 (Version 1)
Quarter: 2023Q4

REPORT INFORMATION
  Report Type: Spontaneous
  Country: US (occurrence: US)
  Receive Date: 20231204
  Receipt Date: 20231204
  Transmission Date: 20240109
  Serious: No
  Sender: FDA-Public Use
  Company Number: US-AMGEN-USASP2023215792

PATIENT

DRUGS (1)
  1. MVASI [Suspect]
     Active Substance: BEVACIZUMAB-AWWB
     Indication: Product used for unknown indication
     Dosage: DOSE ORDERED: 390 MG,DOSE REQUESTED: MVASI 100 MG X 3 VIALS, TOTAL REQUEST IS FOR MVASI 100 MG X 31
     Route: 065

REACTIONS (1)
  - Malaise [Unknown]
